FAERS Safety Report 9555882 (Version 1)
Quarter: 2013Q3

REPORT INFORMATION
  Report Type: Spontaneous
  Country: JP (occurrence: JP)
  Receive Date: 20130926
  Receipt Date: 20130926
  Transmission Date: 20140515
  Serious: Yes (Other)
  Sender: FDA-Public Use
  Company Number: JP-ASTELLAS-2013JP009777

PATIENT
  Age: 71 Year
  Sex: Male

DRUGS (2)
  1. FUNGUARD [Suspect]
     Indication: PROPHYLAXIS
     Dosage: 50 MG, UNKNOWN/D
     Route: 065
  2. FINIBAX [Suspect]
     Indication: PROPHYLAXIS
     Dosage: 0.25 MG, BID
     Route: 065

REACTIONS (3)
  - Drug ineffective [Unknown]
  - Acquired haemophilia [Recovering/Resolving]
  - Systemic candida [Unknown]
